FAERS Safety Report 13774490 (Version 1)
Quarter: 2017Q3

REPORT INFORMATION
  Report Type: Spontaneous
  Country: US (occurrence: US)
  Receive Date: 20170720
  Receipt Date: 20170720
  Transmission Date: 20171127
  Serious: No
  Sender: FDA-Public Use
  Company Number: None

PATIENT
  Age: 64 Year
  Sex: Female
  Weight: 80.55 kg

DRUGS (12)
  1. TEMAZEPAM 15MG CAPSULE QUALITEST PHARMACEUTICALS [Suspect]
     Active Substance: TEMAZEPAM
     Indication: INSOMNIA
     Dosage: ?          OTHER STRENGTH:MG;QUANTITY:2 CAPSULE(S);?
     Route: 048
     Dates: start: 20170716, end: 20170719
  2. SYNTHROID [Concomitant]
     Active Substance: LEVOTHYROXINE SODIUM
  3. VITAMIN D3 [Concomitant]
     Active Substance: CHOLECALCIFEROL
  4. PLAQUINEL [Concomitant]
  5. LORTAB [Concomitant]
     Active Substance: ACETAMINOPHEN\HYDROCODONE BITARTRATE
  6. PROBIOTIC [Concomitant]
     Active Substance: PROBIOTICS NOS
  7. COLACE [Concomitant]
     Active Substance: DOCUSATE SODIUM
  8. ZETIA [Concomitant]
     Active Substance: EZETIMIBE
  9. PROGESTERONE. [Concomitant]
     Active Substance: PROGESTERONE
  10. MINIVELLE [Concomitant]
     Active Substance: ESTRADIOL
  11. LINZESS [Concomitant]
     Active Substance: LINACLOTIDE
  12. TEMAZEPAM. [Concomitant]
     Active Substance: TEMAZEPAM

REACTIONS (2)
  - Product substitution issue [None]
  - Drug ineffective [None]

NARRATIVE: CASE EVENT DATE: 20170716
